FAERS Safety Report 9811199 (Version 2)
Quarter: 2015Q3

REPORT INFORMATION
  Report Type: Spontaneous
  Country: US (occurrence: US)
  Receive Date: 20140110
  Receipt Date: 20150720
  Transmission Date: 20151125
  Serious: Yes (Other)
  Sender: FDA-Public Use
  Company Number: US-SANOFI-AVENTIS-2013SA048559

PATIENT

DRUGS (7)
  1. PLAVIX [Suspect]
     Active Substance: CLOPIDOGREL BISULFATE
     Indication: PERIPHERAL ARTERIAL OCCLUSIVE DISEASE
     Route: 065
     Dates: start: 200406, end: 20051221
  2. ASPIRIN. [Concomitant]
     Active Substance: ASPIRIN
     Dosage: ALONG WITH CLOPIDOGREL
     Dates: start: 200406, end: 200408
  3. PLAVIX [Suspect]
     Active Substance: CLOPIDOGREL BISULFATE
     Indication: STENT PLACEMENT
     Route: 065
     Dates: start: 200406, end: 20051221
  4. PLAVIX [Suspect]
     Active Substance: CLOPIDOGREL BISULFATE
     Indication: TRANSIENT ISCHAEMIC ATTACK
     Route: 065
     Dates: start: 200406, end: 20051221
  5. ASPIRIN. [Concomitant]
     Active Substance: ASPIRIN
     Dates: end: 200406
  6. PLAVIX [Suspect]
     Active Substance: CLOPIDOGREL BISULFATE
     Indication: MYOCARDIAL INFARCTION
     Route: 065
     Dates: start: 200406, end: 20051221
  7. PLAVIX [Suspect]
     Active Substance: CLOPIDOGREL BISULFATE
     Indication: ANTICOAGULANT THERAPY
     Route: 065
     Dates: start: 200406, end: 20051221

REACTIONS (8)
  - Cerebral haemorrhage [Unknown]
  - Haemoptysis [Unknown]
  - Gastrointestinal haemorrhage [Unknown]
  - Epistaxis [Unknown]
  - Gastric haemorrhage [Unknown]
  - Haematochezia [Unknown]
  - Loss of consciousness [Unknown]
  - Haematuria [Unknown]

NARRATIVE: CASE EVENT DATE: 20051220
